FAERS Safety Report 7251269-X (Version None)
Quarter: 2011Q1

REPORT INFORMATION
  Report Type: 
  Country: None (occurrence: None)
  Receive Date: 20110119
  Receipt Date: 20110104
  Transmission Date: 20110831
  Serious: Yes (Other)
  Sender: FDA-Public Use
  Company Number: 2010P1002735

PATIENT
  Age: 82 Year
  Sex: Female
  Weight: 58.0604 kg

DRUGS (15)
  1. NORTRIPTYLINE [Concomitant]
  2. AMITIZA [Concomitant]
  3. LYRICA [Concomitant]
  4. ALPRAZOLAM [Concomitant]
  5. PREMARIN [Concomitant]
  6. CEMTRUM MULTIVITAMIN [Concomitant]
  7. CYCLOBENZAPRINE [Concomitant]
  8. COLCHICINE [Concomitant]
  9. NITROFURANTOIN [Concomitant]
  10. PREV MEDS [Concomitant]
  11. FENTANYL-25 [Suspect]
     Indication: BACK PAIN
     Dosage: 25 MCG/HR;Q3D;TDER
     Route: 062
     Dates: start: 20100301
  12. FENTANYL-25 [Suspect]
     Indication: PAIN IN EXTREMITY
     Dosage: 25 MCG/HR;Q3D;TDER
     Route: 062
     Dates: start: 20100301
  13. HYDROCODONE BITARTRATE [Concomitant]
  14. LEVOTHYROXINE [Concomitant]
  15. ZOLPIDEM TARTRATE [Concomitant]

REACTIONS (5)
  - MEMORY IMPAIRMENT [None]
  - RENAL DISORDER [None]
  - HEADACHE [None]
  - FATIGUE [None]
  - GASTROENTERITIS VIRAL [None]
